FAERS Safety Report 6518823-1 (Version None)
Quarter: 2009Q4

REPORT INFORMATION
  Report Type: 
  Country: None (occurrence: None)
  Receive Date: 20091228
  Receipt Date: 20091218
  Transmission Date: 20100525
  Serious: Yes (Hospitalization, Other)
  Sender: FDA-Public Use
  Company Number: US-JNJFOC-20091206289

PATIENT
  Sex: Female
  Weight: 106.6 kg

DRUGS (3)
  1. DURAGESIC-100 [Suspect]
     Indication: BACK PAIN
     Route: 062
  2. PROZAC [Concomitant]
     Indication: BIPOLAR DISORDER
     Route: 048
  3. OXYCONTIN [Concomitant]
     Indication: PAIN
     Route: 048

REACTIONS (12)
  - CARDIAC INFECTION [None]
  - CARDIOMYOPATHY [None]
  - CHEST PAIN [None]
  - DYSPNOEA [None]
  - HOSPITALISATION [None]
  - MYOCARDIAL INFARCTION [None]
  - PAIN [None]
  - PRODUCT ADHESION ISSUE [None]
  - SEPSIS [None]
  - TYPE 2 DIABETES MELLITUS [None]
  - WEIGHT DECREASED [None]
  - WRONG TECHNIQUE IN DRUG USAGE PROCESS [None]
